FAERS Safety Report 18043348 (Version 1)
Quarter: 2020Q3

REPORT INFORMATION
  Report Type: Other
  Country: US (occurrence: US)
  Receive Date: 20200720
  Receipt Date: 20200720
  Transmission Date: 20201103
  Serious: Yes (Hospitalization, Other)
  Sender: FDA-Public Use
  Company Number: US-ROCHE-2640369

PATIENT
  Sex: Female
  Weight: 48.31 kg

DRUGS (26)
  1. NEURONTIN [Concomitant]
     Active Substance: GABAPENTIN
     Indication: NEUROPATHY PERIPHERAL
     Route: 048
     Dates: start: 2016, end: 2020
  2. EMGALITY [Concomitant]
     Active Substance: GALCANEZUMAB-GNLM
     Indication: VESTIBULAR MIGRAINE
     Route: 058
     Dates: start: 2019
  3. FLAGYL [Concomitant]
     Active Substance: METRONIDAZOLE\METRONIDAZOLE HYDROCHLORIDE
     Indication: BACTERIAL VULVOVAGINITIS
  4. ALBUTEROL HFA [Concomitant]
     Active Substance: ALBUTEROL SULFATE
     Indication: ASTHMA
  5. OCREVUS [Suspect]
     Active Substance: OCRELIZUMAB
     Route: 042
  6. VALIUM [Suspect]
     Active Substance: DIAZEPAM
     Indication: DIZZINESS
     Route: 065
     Dates: end: 2019
  7. MEGESTROL [Concomitant]
     Active Substance: MEGESTROL
     Indication: DECREASED APPETITE
     Route: 048
     Dates: start: 201912
  8. VITAMIN D3 [Concomitant]
     Active Substance: CHOLECALCIFEROL
     Indication: VITAMIN D DECREASED
     Route: 048
     Dates: start: 202006
  9. VITAMIN B12 [Concomitant]
     Active Substance: CYANOCOBALAMIN
     Indication: VITAMIN B12 DECREASED
     Route: 060
     Dates: start: 20200612
  10. MODAFINIL. [Concomitant]
     Active Substance: MODAFINIL
     Indication: FATIGUE
     Route: 048
  11. NEURONTIN [Concomitant]
     Active Substance: GABAPENTIN
     Route: 048
  12. VITAMIN D3 [Concomitant]
     Active Substance: CHOLECALCIFEROL
     Route: 048
  13. VALIUM [Suspect]
     Active Substance: DIAZEPAM
     Dosage: ONGOING: YES
     Route: 065
     Dates: start: 2019
  14. METOPROLOL. [Concomitant]
     Active Substance: METOPROLOL
     Indication: HYPERTENSION
     Route: 048
     Dates: start: 20200504
  15. METOPROLOL. [Concomitant]
     Active Substance: METOPROLOL
     Route: 048
     Dates: start: 202005, end: 202006
  16. IBUPROFEN. [Concomitant]
     Active Substance: IBUPROFEN
     Indication: VESTIBULAR MIGRAINE
     Route: 048
     Dates: start: 2019
  17. SCOPOLAMINE [Concomitant]
     Active Substance: SCOPOLAMINE
     Indication: DIZZINESS
  18. OCREVUS [Suspect]
     Active Substance: OCRELIZUMAB
     Indication: RELAPSING-REMITTING MULTIPLE SCLEROSIS
     Dosage: STARTED JUN OR JUL?2018  FULL DOSE ;ONGOING: YES?DATE OF TREATMENT: 13/FEB/2020, 11/JUL/2019, 10/JAN
     Route: 042
  19. BENZONATATE. [Concomitant]
     Active Substance: BENZONATATE
     Indication: PNEUMONIA
  20. DOXYCYCLINE. [Concomitant]
     Active Substance: DOXYCYCLINE
     Indication: BRONCHITIS
  21. VALIUM [Suspect]
     Active Substance: DIAZEPAM
     Route: 065
     Dates: end: 2019
  22. BENZONATATE. [Concomitant]
     Active Substance: BENZONATATE
     Indication: BRONCHITIS
  23. DOXYCYCLINE. [Concomitant]
     Active Substance: DOXYCYCLINE
     Indication: PNEUMONIA
  24. METOPROLOL. [Concomitant]
     Active Substance: METOPROLOL
     Route: 048
     Dates: start: 202005
  25. PROAIR HFA [Concomitant]
     Active Substance: ALBUTEROL SULFATE
  26. LASIX [Concomitant]
     Active Substance: FUROSEMIDE

REACTIONS (18)
  - Multiple sclerosis relapse [Recovered/Resolved]
  - Myocardial necrosis marker increased [Recovered/Resolved]
  - Dizziness [Recovered/Resolved]
  - Bronchitis [Recovered/Resolved]
  - Palpitations [Recovered/Resolved]
  - Arrhythmia [Not Recovered/Not Resolved]
  - Pneumonia [Recovered/Resolved]
  - Rash [Recovered/Resolved]
  - Drug ineffective [Unknown]
  - Hypertension [Recovered/Resolved]
  - Blood pressure decreased [Recovered/Resolved]
  - Blood sodium decreased [Not Recovered/Not Resolved]
  - Thyroid mass [Not Recovered/Not Resolved]
  - Nasopharyngitis [Recovered/Resolved]
  - Vestibular migraine [Not Recovered/Not Resolved]
  - Swelling [Recovered/Resolved]
  - Heart rate decreased [Unknown]
  - Hyperthyroidism [Not Recovered/Not Resolved]

NARRATIVE: CASE EVENT DATE: 2019
